FAERS Safety Report 15526213 (Version 2)
Quarter: 2018Q4

REPORT INFORMATION
  Report Type: Spontaneous
  Country: US (occurrence: US)
  Receive Date: 20181018
  Receipt Date: 20181018
  Transmission Date: 20190205
  Serious: No
  Sender: FDA-Public Use
  Company Number: US-AMGEN-USASP2018130863

PATIENT
  Sex: Female

DRUGS (2)
  1. ANADOL [Concomitant]
  2. REPATHA [Suspect]
     Active Substance: EVOLOCUMAB
     Indication: PRODUCT USED FOR UNKNOWN INDICATION
     Dosage: UNK
     Route: 065
     Dates: start: 2017

REACTIONS (12)
  - Injection site irritation [Unknown]
  - Sneezing [Recovered/Resolved]
  - Injection site erythema [Unknown]
  - Injection site swelling [Unknown]
  - Weight increased [Unknown]
  - Back pain [Recovered/Resolved]
  - Discomfort [Unknown]
  - Injection site pruritus [Unknown]
  - Heart rate increased [Unknown]
  - Abdominal distension [Unknown]
  - Emotional disorder [Unknown]
  - Cough [Recovered/Resolved]
